FAERS Safety Report 10012881 (Version 1)
Quarter: 2014Q1

REPORT INFORMATION
  Report Type: Spontaneous
  Country: US (occurrence: US)
  Receive Date: 20140314
  Receipt Date: 20140314
  Transmission Date: 20141002
  Serious: Yes (Other)
  Sender: FDA-Public Use
  Company Number: US-ACTAVIS-2014-04365

PATIENT
  Age: 49 Year
  Sex: Female

DRUGS (4)
  1. CARBIDOPA/LEVODOPA (AELLC) [Suspect]
     Indication: PARKINSON^S DISEASE
     Dosage: 1 TABLET Q3H, ADDED PILS BY HER OWN JUDGEMENT
     Route: 065
  2. CARBIDOPA/LEVODOPA (AELLC) [Suspect]
     Indication: INTENTIONAL OVERDOSE
  3. ROPINIROLE [Concomitant]
     Indication: PARKINSON^S DISEASE
     Dosage: 2 MG, BID
     Route: 065
  4. CITALOPRAM [Concomitant]
     Indication: PRODUCT USED FOR UNKNOWN INDICATION
     Dosage: 40 MG, DAILY
     Route: 065

REACTIONS (1)
  - Dopamine dysregulation syndrome [Recovered/Resolved]
